FAERS Safety Report 10197157 (Version 1)
Quarter: 2014Q2

REPORT INFORMATION
  Report Type: Spontaneous
  Country: US (occurrence: None)
  Receive Date: 20140523
  Receipt Date: 20140523
  Transmission Date: 20141212
  Serious: Yes (Life-Threatening, Disabling)
  Sender: FDA-Public Use
  Company Number: None

PATIENT
  Age: 69 Year
  Sex: Male
  Weight: 88.45 kg

DRUGS (10)
  1. RANEXA [Suspect]
     Indication: RENAL FAILURE
     Dosage: 1 PILL 2 DAILY??
     Route: 048
     Dates: start: 20100510, end: 20140519
  2. ERTUGLIFIOZIN [Concomitant]
  3. KALEXATE [Concomitant]
  4. ASPIRIN [Concomitant]
  5. TRICOR [Concomitant]
  6. ALLUPURINOL [Concomitant]
  7. PANTOPRAZOLE [Concomitant]
  8. METOPROLOL [Concomitant]
  9. AMLODIPINE [Concomitant]
  10. BUMETANIDE [Concomitant]

REACTIONS (1)
  - Renal impairment [None]
